FAERS Safety Report 24966816 (Version 1)
Quarter: 2025Q1

REPORT INFORMATION
  Report Type: Spontaneous
  Country: US (occurrence: US)
  Receive Date: 20250213
  Receipt Date: 20250213
  Transmission Date: 20250409
  Serious: Yes (Other)
  Sender: ELI LILLY AND COMPANY
  Company Number: US-ELI_LILLY_AND_COMPANY-US202502002241

PATIENT
  Sex: Female

DRUGS (1)
  1. PROZAC [Suspect]
     Active Substance: FLUOXETINE HYDROCHLORIDE
     Indication: Product used for unknown indication
     Route: 065

REACTIONS (8)
  - Dementia [Unknown]
  - Bipolar disorder [Unknown]
  - Diabetes mellitus [Unknown]
  - Hypoacusis [Unknown]
  - Arthritis [Unknown]
  - Movement disorder [Unknown]
  - Anxiety [Unknown]
  - Drug ineffective [Unknown]
